FAERS Safety Report 9242979 (Version 1)
Quarter: 2013Q2

REPORT INFORMATION
  Report Type: Spontaneous
  Country: US (occurrence: US)
  Receive Date: 20130420
  Receipt Date: 20130420
  Transmission Date: 20140414
  Serious: No
  Sender: FDA-Public Use
  Company Number: US-ASTRAZENECA-2013SE19467

PATIENT
  Sex: 0

DRUGS (3)
  1. SEROQUEL [Suspect]
     Route: 048
  2. LITHIUM [Suspect]
     Route: 065
  3. GEODON [Suspect]
     Route: 065

REACTIONS (3)
  - Diabetes insipidus [Unknown]
  - Weight decreased [Unknown]
  - Weight increased [Unknown]
